FAERS Safety Report 8871679 (Version 1)
Quarter: 2012Q4

REPORT INFORMATION
  Report Type: 
  Country: US (occurrence: None)
  Receive Date: 20121026
  Receipt Date: 20121026
  Transmission Date: 20130627
  Serious: Yes (Hospitalization)
  Sender: FDA-Public Use
  Company Number: None

PATIENT
  Sex: Female
  Weight: 64 kg

DRUGS (2)
  1. CISPLATIN [Suspect]
     Dates: end: 20121118
  2. PACLITAXEL (TAXOL) [Suspect]
     Dates: end: 20111117

REACTIONS (4)
  - Nausea [None]
  - Vomiting [None]
  - Abdominal pain [None]
  - Blood potassium decreased [None]
